FAERS Safety Report 7685904-9 (Version None)
Quarter: 2011Q3

REPORT INFORMATION
  Report Type: 
  Country: None (occurrence: None)
  Receive Date: 20110816
  Receipt Date: 20110805
  Transmission Date: 20111222
  Serious: Yes (Hospitalization)
  Sender: FDA-Public Use
  Company Number: IT-ELI_LILLY_AND_COMPANY-IT201108002264

PATIENT
  Sex: Female

DRUGS (5)
  1. HUMALOG [Suspect]
     Indication: TYPE 2 DIABETES MELLITUS
     Dosage: 30 DF, QD
     Route: 058
     Dates: start: 20081101, end: 20110726
  2. ASPIRIN [Concomitant]
     Dosage: UNK
  3. HUMALOG [Suspect]
     Dosage: 34 DF, QD
     Route: 058
     Dates: start: 20110727
  4. LANTUS [Concomitant]
     Dosage: 14 DF, QD
     Dates: start: 20110514
  5. ESCITALOPRAM [Concomitant]
     Dosage: UNK

REACTIONS (3)
  - MALAISE [None]
  - HYPOGLYCAEMIA [None]
  - HYPERHIDROSIS [None]
